FAERS Safety Report 25330027 (Version 2)
Quarter: 2025Q2

REPORT INFORMATION
  Report Type: Spontaneous
  Country: CL (occurrence: CL)
  Receive Date: 20250519
  Receipt Date: 20250610
  Transmission Date: 20250716
  Serious: Yes (Other)
  Sender: SANDOZ
  Company Number: CL-SANDOZ-SDZ2025CL029959

PATIENT
  Age: 45 Year
  Sex: Female
  Weight: 84 kg

DRUGS (4)
  1. LEUCOVORIN [Suspect]
     Active Substance: LEUCOVORIN\LEUCOVORIN CALCIUM
     Indication: Product used for unknown indication
     Route: 017
     Dates: start: 20250324, end: 20250324
  2. OXALIPLATIN [Suspect]
     Active Substance: OXALIPLATIN
     Indication: Product used for unknown indication
     Route: 042
     Dates: start: 20250324, end: 20250324
  3. OXALIPLATIN [Suspect]
     Active Substance: OXALIPLATIN
     Route: 042
  4. BICTEGRAVIR [Concomitant]
     Active Substance: BICTEGRAVIR
     Indication: Product used for unknown indication
     Route: 065

REACTIONS (8)
  - Angina pectoris [Recovered/Resolved]
  - Sense of oppression [Unknown]
  - Emotional distress [Recovered/Resolved]
  - Choking sensation [Unknown]
  - Anger [Recovered/Resolved]
  - Suffocation feeling [Recovered/Resolved]
  - Chest discomfort [Recovered/Resolved]
  - Rash [Recovered/Resolved]

NARRATIVE: CASE EVENT DATE: 20250324
